FAERS Safety Report 10142636 (Version 3)
Quarter: 2014Q2

REPORT INFORMATION
  Report Type: Spontaneous
  Country: US (occurrence: US)
  Receive Date: 20140430
  Receipt Date: 20140625
  Transmission Date: 20141212
  Serious: No
  Sender: FDA-Public Use
  Company Number: US-009507513-1404USA013073

PATIENT
  Age: 27 Year
  Sex: Female
  Weight: 77.98 kg

DRUGS (2)
  1. NEXPLANON [Suspect]
     Indication: CONTRACEPTION
     Dosage: 1 ROD/THREE YEARS
     Route: 059
     Dates: start: 20130515, end: 20140520
  2. CYMBALTA [Concomitant]
     Dosage: UNK

REACTIONS (4)
  - Implant site pruritus [Unknown]
  - Limb discomfort [Unknown]
  - Device kink [Recovered/Resolved]
  - Device breakage [Recovered/Resolved]
